FAERS Safety Report 20868668 (Version 17)
Quarter: 2025Q2

REPORT INFORMATION
  Report Type: Spontaneous
  Country: US (occurrence: US)
  Receive Date: 20220524
  Receipt Date: 20250428
  Transmission Date: 20250717
  Serious: No
  Sender: PFIZER
  Company Number: US-PFIZER INC-202200712917

PATIENT
  Age: 66 Year
  Sex: Female
  Weight: 62.14 kg

DRUGS (3)
  1. PREMARIN [Suspect]
     Active Substance: ESTROGENS, CONJUGATED
     Indication: Menopausal disorder
     Dosage: 0.625 MG, 1X/DAY
     Route: 048
     Dates: start: 2018
  2. PREMARIN [Suspect]
     Active Substance: ESTROGENS, CONJUGATED
     Indication: Hot flush
  3. PREMARIN [Suspect]
     Active Substance: ESTROGENS, CONJUGATED
     Indication: Oestrogen replacement therapy

REACTIONS (7)
  - Accident [Unknown]
  - Injury [Unknown]
  - Nerve compression [Not Recovered/Not Resolved]
  - Movement disorder [Unknown]
  - Malaise [Unknown]
  - Pain [Unknown]
  - Sciatic nerve injury [Unknown]
